FAERS Safety Report 8972389 (Version 3)
Quarter: 2013Q2

REPORT INFORMATION
  Report Type: Report from Study
  Country: ES (occurrence: ES)
  Receive Date: 20121218
  Receipt Date: 20130412
  Transmission Date: 20140414
  Serious: Yes (Death, Hospitalization)
  Sender: FDA-Public Use
  Company Number: ES-CELGENEUS-144-21880-12120498

PATIENT
  Age: 57 Year
  Sex: Female
  Weight: 68 kg

DRUGS (7)
  1. REVLIMID [Suspect]
     Indication: AMYLOIDOSIS
     Dosage: 15 MILLIGRAM
     Route: 048
     Dates: start: 20120820, end: 20120820
  2. REVLIMID [Suspect]
     Route: 048
     Dates: start: 20120821
  3. DEXAMETHASONE [Suspect]
     Indication: AMYLOIDOSIS
     Dosage: 20 MILLIGRAM
     Route: 048
     Dates: start: 20120820, end: 20120907
  4. CYCLOPHOSPHAMIDE [Suspect]
     Indication: AMYLOIDOSIS
     Dosage: 510 MILLIGRAM
     Route: 041
     Dates: start: 20120820, end: 20120907
  5. FUROSEMIDE [Concomitant]
     Indication: PRODUCT USED FOR UNKNOWN INDICATION
     Dosage: 60 MILLIGRAM
     Route: 065
  6. FUROSEMIDE [Concomitant]
     Dosage: 360 MILLIGRAM
     Route: 065
     Dates: start: 20120827
  7. ACETYLSALICYLIC ACID [Concomitant]
     Indication: PRODUCT USED FOR UNKNOWN INDICATION
     Route: 065

REACTIONS (3)
  - Cardiac failure [Fatal]
  - Renal failure [Not Recovered/Not Resolved]
  - Renal impairment [Recovering/Resolving]
